FAERS Safety Report 9479513 (Version 1)
Quarter: 2013Q3

REPORT INFORMATION
  Report Type: Spontaneous
  Country: US (occurrence: US)
  Receive Date: 20130827
  Receipt Date: 20130827
  Transmission Date: 20140515
  Serious: No
  Sender: FDA-Public Use
  Company Number: US-009507513-1308USA006742

PATIENT
  Sex: Female

DRUGS (1)
  1. PROVENTIL [Suspect]
     Dosage: 90 MCG/TWO PUFFS, EVERY FOUR HOURS AS NEEDED
     Route: 055
     Dates: start: 2008

REACTIONS (4)
  - Drug dose omission [Unknown]
  - Product odour abnormal [Unknown]
  - Product container issue [Unknown]
  - No adverse event [Unknown]
